FAERS Safety Report 7365971-2 (Version None)
Quarter: 2011Q1

REPORT INFORMATION
  Report Type: 
  Country: None (occurrence: None)
  Receive Date: 20110322
  Receipt Date: 20110311
  Transmission Date: 20110831
  Serious: Yes (Hospitalization, Other)
  Sender: FDA-Public Use
  Company Number: US-US-EMD SERONO, INC.-7047558

PATIENT
  Sex: Female
  Weight: 103 kg

DRUGS (2)
  1. REBIF [Suspect]
     Indication: MULTIPLE SCLEROSIS
     Route: 058
     Dates: start: 20090101, end: 20110119
  2. CLONIDINE [Concomitant]
     Indication: HYPERTENSION
     Dates: end: 20101201

REACTIONS (5)
  - TYPE 2 DIABETES MELLITUS [None]
  - HYPERTENSION [None]
  - DEHYDRATION [None]
  - SINUSITIS [None]
  - PYREXIA [None]
